FAERS Safety Report 13144640 (Version 1)
Quarter: 2017Q1

REPORT INFORMATION
  Report Type: Spontaneous
  Country: CA (occurrence: CA)
  Receive Date: 20170124
  Receipt Date: 20170124
  Transmission Date: 20170428
  Serious: Yes (Other)
  Sender: FDA-Public Use
  Company Number: CA-TEVA-732287ACC

PATIENT
  Age: 24 Year
  Sex: Female

DRUGS (1)
  1. TEVA-CLINDAMYCIN [Suspect]
     Active Substance: CLINDAMYCIN PHOSPHATE
     Indication: ANIMAL BITE
     Dosage: 1800 MILLIGRAM DAILY;
     Route: 048

REACTIONS (1)
  - Visual impairment [Unknown]
